FAERS Safety Report 19348755 (Version 1)
Quarter: 2021Q2

REPORT INFORMATION
  Report Type: Spontaneous
  Country: US (occurrence: US)
  Receive Date: 20210528
  Receipt Date: 20210528
  Transmission Date: 20210717
  Serious: Yes (Disabling)
  Sender: FDA-Public Use
  Company Number: None

PATIENT
  Age: 69 Year
  Sex: Female
  Weight: 47.25 kg

DRUGS (7)
  1. ENALAPRIL [Concomitant]
     Active Substance: ENALAPRIL
  2. URSODIOL. [Concomitant]
     Active Substance: URSODIOL
  3. INSULIN [Concomitant]
     Active Substance: INSULIN NOS
  4. PENTOXIFYLLINE. [Concomitant]
     Active Substance: PENTOXIFYLLINE
  5. OCALIVA [Suspect]
     Active Substance: OBETICHOLIC ACID
     Indication: PRIMARY BILIARY CHOLANGITIS
     Dosage: ?          QUANTITY:1 TABLET(S);?
     Route: 048
     Dates: start: 20180115
  6. GABAPENTIN. [Concomitant]
     Active Substance: GABAPENTIN
  7. NOVOLOGUE INSULIN PUMP [Concomitant]

REACTIONS (4)
  - Fatigue [None]
  - Vomiting [None]
  - Weight decreased [None]
  - Diarrhoea [None]

NARRATIVE: CASE EVENT DATE: 20210206
